FAERS Safety Report 9182262 (Version 1)
Quarter: 2012Q4

REPORT INFORMATION
  Report Type: 
  Country: US (occurrence: US)
  Receive Date: 20121030
  Receipt Date: 20121030
  Transmission Date: 20130627
  Serious: No
  Sender: FDA-Public Use
  Company Number: US-GLAXOSMITHKLINE-A0984798A

PATIENT
  Age: 70 Year
  Sex: Female

DRUGS (4)
  1. SEREVENT [Suspect]
     Indication: EX-TOBACCO USER
     Dosage: 1PUFF Twice per day
     Route: 055
     Dates: start: 2000
  2. PULMICORT [Concomitant]
  3. SIMVASTATIN [Concomitant]
  4. AMLODIPINE [Concomitant]

REACTIONS (3)
  - Dyspnoea [Not Recovered/Not Resolved]
  - Product quality issue [Unknown]
  - Dyspnoea [Unknown]
